FAERS Safety Report 17227454 (Version 1)
Quarter: 2020Q1

REPORT INFORMATION
  Report Type: Report from Study
  Country: None (occurrence: US)
  Receive Date: 20200103
  Receipt Date: 20200103
  Transmission Date: 20200409
  Serious: Yes (Death)
  Sender: FDA-Public Use
  Company Number: US-ABBVIE-19K-163-3215429-00

PATIENT
  Sex: Female

DRUGS (4)
  1. GABAPENTIN. [Suspect]
     Active Substance: GABAPENTIN
     Indication: NEURALGIA
     Route: 065
  2. DULOXETINE. [Suspect]
     Active Substance: DULOXETINE
     Indication: NEURALGIA
     Route: 065
     Dates: start: 20181115, end: 20190423
  3. CREON [Suspect]
     Active Substance: PANCRELIPASE AMYLASE\PANCRELIPASE LIPASE\PANCRELIPASE PROTEASE
     Indication: CONGENITAL PANCREATIC ANOMALY
     Dosage: 4 CAPS 3 TIMES A DAY WITH MEAL AND 2CAPS WITH SNACK TWICE A DAY
     Route: 048
     Dates: start: 201802, end: 20190423
  4. AMITRIPTYLINE [Suspect]
     Active Substance: AMITRIPTYLINE
     Indication: NEURALGIA
     Route: 065
     Dates: start: 20181115, end: 20190423

REACTIONS (4)
  - Off label use [Unknown]
  - Suicidal ideation [Fatal]
  - Toxicity to various agents [Fatal]
  - Suicide attempt [Fatal]
